FAERS Safety Report 8302522-X (Version None)
Quarter: 2012Q1

REPORT INFORMATION
  Report Type: 
  Country: None (occurrence: None)
  Receive Date: 20120326
  Receipt Date: 20110524
  Transmission Date: 20120608
  Serious: Yes (Other)
  Sender: FDA-Public Use
  Company Number: PHHY2011US19265

PATIENT
  Age: 73 Year
  Sex: Female
  Weight: 59 kg

DRUGS (16)
  1. ALLOPURINOL [Concomitant]
  2. ALPRAZOLAM [Concomitant]
  3. CALCIUM CARBONATE [Concomitant]
  4. BENICAR [Concomitant]
  5. PREMARIN [Concomitant]
  6. ACETAMINOPHEN [Concomitant]
  7. GLUCOSAMINE (GLUCOSAMINE) [Concomitant]
  8. TASIGNA [Suspect]
     Indication: CHRONIC LYMPHOCYTIC LEUKAEMIA
     Dosage: 400 MG, Q12 HRS, ORAL ; 200 MG, BID, ORAL ; 150 MG, Q 12 HRS, ORAL
     Route: 048
     Dates: start: 20110302
  9. TASIGNA [Suspect]
     Indication: CHRONIC LYMPHOCYTIC LEUKAEMIA
     Dosage: 400 MG, Q12 HRS, ORAL ; 200 MG, BID, ORAL ; 150 MG, Q 12 HRS, ORAL
     Route: 048
     Dates: start: 20110114
  10. SLOW FE [Concomitant]
  11. INNOPRAN (PROPRANOLOL HYDROCHLORIDE) [Concomitant]
  12. AMITRIPTYLINE HCL [Concomitant]
  13. UROGESIC BLUE (HYOSCYAMINE SULFATE, METHENAMINE, METHYLTHIONINIUM CHLO [Concomitant]
  14. LOVAZA [Concomitant]
  15. BIOTIN (BIOTIN) [Concomitant]
  16. CENTRUM SILVER (ASCORBIC ACID, CALCIUM, MINERALS NOS, RETINOL, TOCOPHE [Concomitant]

REACTIONS (4)
  - PRURITUS [None]
  - BLOOD MAGNESIUM DECREASED [None]
  - WHITE BLOOD CELL COUNT DECREASED [None]
  - RASH [None]
